FAERS Safety Report 4308686-7 (Version None)
Quarter: 2004Q1

REPORT INFORMATION
  Report Type: 
  Country: None (occurrence: None)
  Receive Date: 20040301
  Receipt Date: 20040301
  Transmission Date: 20041129
  Serious: Yes (Other)
  Sender: FDA-Public Use
  Company Number: None

PATIENT
  Age: 80 Year
  Sex: Male
  Weight: 49.6 kg

DRUGS (5)
  1. MOXIFLOXACIN HCL [Suspect]
     Indication: PNEUMONIA ASPIRATION
     Dosage: 400 MG STAT IV
     Route: 042
     Dates: start: 20030923
  2. PROPOFOL [Concomitant]
  3. ZANTAC [Concomitant]
  4. REGLAN [Concomitant]
  5. ZOSYN [Concomitant]

REACTIONS (2)
  - ELECTROCARDIOGRAM QT PROLONGED [None]
  - RESPIRATORY FAILURE [None]
